FAERS Safety Report 4663994-5 (Version None)
Quarter: 2005Q2

REPORT INFORMATION
  Report Type: 
  Country: None (occurrence: None)
  Receive Date: 20050516
  Receipt Date: 20050516
  Transmission Date: 20051028
  Serious: Yes (Hospitalization)
  Sender: FDA-Public Use
  Company Number: None

PATIENT
  Age: 68 Year
  Sex: Female
  Weight: 79 kg

DRUGS (8)
  1. PROMETHAZINE [Suspect]
     Indication: NAUSEA
     Dosage: 25MG Q 6 HOURS PRN INTRAVENOUS
     Route: 042
     Dates: start: 20050505, end: 20050505
  2. PROMETHAZINE [Suspect]
     Indication: VOMITING
     Dosage: 25MG Q 6 HOURS PRN INTRAVENOUS
     Route: 042
     Dates: start: 20050505, end: 20050505
  3. HYDROMORPHONE HCL [Concomitant]
  4. ACETAMINOPHEN [Concomitant]
  5. LEVOTHYROXINE SODIUM [Concomitant]
  6. ESTRACE [Concomitant]
  7. HYDROCHLOROTHIAZIDE [Concomitant]
  8. VANCOMYCIN [Concomitant]

REACTIONS (4)
  - INCORRECT ROUTE OF DRUG ADMINISTRATION [None]
  - LETHARGY [None]
  - MEDICATION ERROR [None]
  - RESPIRATORY DEPRESSION [None]
